FAERS Safety Report 4449087-0 (Version None)
Quarter: 2004Q3

REPORT INFORMATION
  Report Type: 
  Country: None (occurrence: None)
  Receive Date: 20040910
  Receipt Date: 20040824
  Transmission Date: 20050211
  Serious: Yes (Other)
  Sender: FDA-Public Use
  Company Number: 2004230191DE

PATIENT
  Age: 64 Year
  Sex: Female
  Weight: 38.7 kg

DRUGS (6)
  1. DELTA-CORTEF [Suspect]
     Indication: PEMPHIGUS
     Dosage: SEE IMAGE
     Route: 048
     Dates: start: 19970901, end: 20020801
  2. DELTA-CORTEF [Suspect]
     Indication: PEMPHIGUS
     Dosage: SEE IMAGE
     Route: 048
     Dates: start: 20020901
  3. DELTA-CORTEF [Suspect]
     Indication: PEMPHIGUS
     Dosage: SEE IMAGE
     Route: 048
     Dates: start: 20021001
  4. CYCLOSPORINE [Suspect]
     Indication: PEMPHIGUS
     Dosage: 200 MG, QD
     Dates: start: 19970901, end: 20020801
  5. AZATHIOPRINE [Suspect]
     Indication: PEMPHIGUS
     Dosage: 50 MG, QD
     Dates: start: 20020701
  6. DACLIZUMAB [Concomitant]

REACTIONS (6)
  - CONDITION AGGRAVATED [None]
  - CUSHING'S SYNDROME [None]
  - DERMATITIS BULLOUS [None]
  - DIABETES MELLITUS [None]
  - HYPERTENSION [None]
  - NERVOUS SYSTEM DISORDER [None]
